FAERS Safety Report 4690610-9 (Version None)
Quarter: 2005Q2

REPORT INFORMATION
  Report Type: 
  Country: None (occurrence: None)
  Receive Date: 20050615
  Receipt Date: 20050608
  Transmission Date: 20051028
  Serious: Yes (Other)
  Sender: FDA-Public Use
  Company Number: PHEH2005US06632

PATIENT
  Age: 57 Year
  Sex: 0

DRUGS (2)
  1. CLOZARIL [Suspect]
     Dosage: UNK, UNK
     Route: 048
     Dates: end: 20050609
  2. INTERFERON [Suspect]

REACTIONS (2)
  - HEPATITIS C [None]
  - LEUKOPENIA [None]
